FAERS Safety Report 5246704-2 (Version None)
Quarter: 2007Q1

REPORT INFORMATION
  Report Type: 
  Country: None (occurrence: None)
  Receive Date: 20070226
  Receipt Date: 20070214
  Transmission Date: 20070707
  Serious: Yes (Hospitalization)
  Sender: FDA-Public Use
  Company Number: MA-BRISTOL-MYERS SQUIBB COMPANY-13681499

PATIENT
  Age: 33 Year
  Sex: Male

DRUGS (2)
  1. HYDREA [Suspect]
     Route: 048
     Dates: start: 19940101
  2. ALLOPURINOL [Concomitant]
     Dates: start: 19940101

REACTIONS (7)
  - ALOPECIA [None]
  - ERYTHEMA [None]
  - MUSCLE FATIGUE [None]
  - NAIL DYSTROPHY [None]
  - SKIN ULCER [None]
  - SQUAMOUS CELL CARCINOMA [None]
  - STOMATITIS [None]
